FAERS Safety Report 11418673 (Version 1)
Quarter: 2015Q3

REPORT INFORMATION
  Report Type: Spontaneous
  Country: US (occurrence: US)
  Receive Date: 20150826
  Receipt Date: 20150826
  Transmission Date: 20151125
  Serious: No
  Sender: FDA-Public Use
  Company Number: US-ASTRAZENECA-2015SE81586

PATIENT
  Sex: Female
  Weight: 81.6 kg

DRUGS (3)
  1. ALBUTEROL. [Concomitant]
     Active Substance: ALBUTEROL
  2. SYMBICORT [Suspect]
     Active Substance: BUDESONIDE\FORMOTEROL FUMARATE DIHYDRATE
     Indication: EMPHYSEMA
     Dosage: 2 PUFF DAILY
     Route: 055
     Dates: start: 20141201
  3. SYMBICORT [Suspect]
     Active Substance: BUDESONIDE\FORMOTEROL FUMARATE DIHYDRATE
     Indication: EMPHYSEMA
     Dosage: 2 PUFF DAILY
     Route: 055

REACTIONS (6)
  - Feeling abnormal [Unknown]
  - Dyspnoea [Unknown]
  - Intentional product misuse [Unknown]
  - Cough [Unknown]
  - Drug ineffective [Unknown]
  - Fluid retention [Unknown]
